FAERS Safety Report 5774766-2 (Version None)
Quarter: 2008Q2

REPORT INFORMATION
  Report Type: 
  Country: None (occurrence: None)
  Receive Date: 20080612
  Receipt Date: 20071101
  Transmission Date: 20081010
  Serious: Yes (Hospitalization)
  Sender: FDA-Public Use
  Company Number: 2007S1010894

PATIENT
  Age: 31 Year
  Sex: Male

DRUGS (4)
  1. AZATHIOPRINE [Suspect]
     Indication: COLITIS
     Dosage: NULL_1_DAY;
  2. STEROIDS (PREV.) [Concomitant]
  3. AZATHIOPRINE (PREV.) [Concomitant]
  4. PREDNISONE (CON.) [Concomitant]

REACTIONS (2)
  - ACUTE FEBRILE NEUTROPHILIC DERMATOSIS [None]
  - CELLULITIS [None]
